FAERS Safety Report 4511462-3 (Version None)
Quarter: 2004Q4

REPORT INFORMATION
  Report Type: 
  Country: None (occurrence: None)
  Receive Date: 20041129
  Receipt Date: 20040819
  Transmission Date: 20050328
  Serious: No
  Sender: FDA-Public Use
  Company Number: US-BRISTOL-MYERS SQUIBB COMPANY-12677696

PATIENT
  Age: 11 Year
  Sex: Female
  Weight: 47 kg

DRUGS (3)
  1. ABILIFY [Suspect]
     Indication: BIPOLAR DISORDER
     Dosage: 1/2 OF A 10 MG TABLET IN AM
     Route: 048
     Dates: start: 20040811
  2. TRAZODONE HCL [Concomitant]
     Dosage: AT NIGHT
  3. BACTRIM [Concomitant]

REACTIONS (4)
  - AFFECT LABILITY [None]
  - IRRITABILITY [None]
  - RESTLESSNESS [None]
  - SLEEP DISORDER [None]
